FAERS Safety Report 10232440 (Version 1)
Quarter: 2014Q2

REPORT INFORMATION
  Report Type: Spontaneous
  Country: US (occurrence: None)
  Receive Date: 20140506
  Receipt Date: 20140506
  Transmission Date: 20141212
  Serious: Yes (Other)
  Sender: FDA-Public Use
  Company Number: 1216156

PATIENT
  Sex: Female

DRUGS (1)
  1. AVASTIN (BEVACIZUMAB) (INFUSION, SOLUTION) [Suspect]
     Indication: OFF LABEL USE
     Dosage: (100 MG), INTRAVITREAL
     Dates: start: 20121217

REACTIONS (1)
  - Endophthalmitis [None]
